FAERS Safety Report 4746374-3 (Version None)
Quarter: 2005Q3

REPORT INFORMATION
  Report Type: 
  Country: None (occurrence: None)
  Receive Date: 20050816
  Receipt Date: 20050816
  Transmission Date: 20060218
  Serious: Yes (Hospitalization)
  Sender: FDA-Public Use
  Company Number: None

PATIENT
  Age: 58 Year
  Sex: Male
  Weight: 130.1823 kg

DRUGS (3)
  1. IRBESARTAN [Suspect]
     Indication: HYPERTENSION
     Dosage: 75 MG DAILY ORAL
     Route: 048
     Dates: start: 20050228, end: 20050803
  2. FUROSEMIDE [Suspect]
     Indication: HYPERTENSION
     Dosage: 80 MG DAILY ORAL
     Route: 048
     Dates: start: 20030109, end: 20050803
  3. METFORMIN HCL [Concomitant]

REACTIONS (1)
  - RENAL FAILURE ACUTE [None]
